FAERS Safety Report 5333514-0 (Version None)
Quarter: 2007Q2

REPORT INFORMATION
  Report Type: 
  Country: None (occurrence: None)
  Receive Date: 20070524
  Receipt Date: 20070516
  Transmission Date: 20071010
  Serious: Yes (Other)
  Sender: FDA-Public Use
  Company Number: CH-BRISTOL-MYERS SQUIBB COMPANY-13744479

PATIENT
  Age: 39 Year
  Sex: Female

DRUGS (3)
  1. ENDOXAN [Suspect]
     Indication: NEPHROTIC SYNDROME
     Route: 048
     Dates: start: 20061121, end: 20070131
  2. PREDNISONE TAB [Suspect]
     Indication: RENAL DISORDER
     Dates: start: 20061001
  3. AZATHIOPRINE SODIUM [Suspect]
     Indication: RENAL DISORDER
     Dates: start: 20070201

REACTIONS (2)
  - AMENORRHOEA [None]
  - HOT FLUSH [None]
